FAERS Safety Report 18796567 (Version 4)
Quarter: 2021Q2

REPORT INFORMATION
  Report Type: Report from Study
  Country: US (occurrence: US)
  Receive Date: 20210127
  Receipt Date: 20210610
  Transmission Date: 20210717
  Serious: No
  Sender: FDA-Public Use
  Company Number: US-B.I. PHARMACEUTICALS,INC./RIDGEFIELD-2021-BI-079245

PATIENT
  Age: 66 Year
  Sex: Male

DRUGS (1)
  1. OFEV [Suspect]
     Active Substance: NINTEDANIB
     Indication: PULMONARY FIBROSIS
     Dosage: TAKE ONE BY MOUTH TWICE DAILY
     Route: 048

REACTIONS (7)
  - Diarrhoea [Unknown]
  - Diarrhoea [Unknown]
  - Flatulence [Unknown]
  - Vision blurred [Unknown]
  - Abdominal distension [Unknown]
  - Dry eye [Unknown]
  - Decreased appetite [Unknown]

NARRATIVE: CASE EVENT DATE: 202102
